FAERS Safety Report 9493792 (Version 2)
Quarter: 2013Q4

REPORT INFORMATION
  Report Type: Spontaneous
  Country: JP (occurrence: JP)
  Receive Date: 20130902
  Receipt Date: 20131004
  Transmission Date: 20140711
  Serious: Yes (Hospitalization, Other)
  Sender: FDA-Public Use
  Company Number: JP-ROCHE-1268089

PATIENT
  Age: 49 Year
  Sex: Male
  Weight: 52 kg

DRUGS (7)
  1. XELODA [Suspect]
     Indication: COLON CANCER
     Route: 048
     Dates: start: 20130724, end: 20130730
  2. XELODA [Suspect]
     Indication: COLON CANCER
     Route: 048
     Dates: start: 20130802, end: 20130903
  3. KYTRIL [Suspect]
     Indication: PRODUCT USED FOR UNKNOWN INDICATION
     Route: 042
  4. ELPLAT [Suspect]
     Indication: COLON CANCER
     Dosage: DOSAGE IS UNCERTAIN. ?THE FIRST COURSE
     Route: 041
     Dates: start: 20130724
  5. ELPLAT [Suspect]
     Indication: COLON CANCER
     Dosage: DOSAGE IS UNCERTAIN.
     Route: 041
     Dates: start: 20130814, end: 20130903
  6. DECADRON [Concomitant]
     Route: 048
  7. BIOFERMIN [Concomitant]
     Route: 048

REACTIONS (6)
  - Gastrointestinal perforation [Recovering/Resolving]
  - Eczema [Recovering/Resolving]
  - Melaena [Unknown]
  - Food poisoning [Unknown]
  - Haematochezia [Unknown]
  - Constipation [Unknown]
